FAERS Safety Report 10341638 (Version 2)
Quarter: 2014Q3

REPORT INFORMATION
  Report Type: Spontaneous
  Country: JP (occurrence: JP)
  Receive Date: 20140725
  Receipt Date: 20140801
  Transmission Date: 20150326
  Serious: Yes (Death)
  Sender: FDA-Public Use
  Company Number: PHHY2014JP091145

PATIENT
  Age: 92 Year
  Sex: Male

DRUGS (2)
  1. FAMVIR [Suspect]
     Active Substance: FAMCICLOVIR
     Indication: HERPES ZOSTER
     Dosage: 500 MG, QD
     Route: 048
  2. ARASENA A [Concomitant]
     Active Substance: VIDARABINE
     Dosage: UNK UKN, UNK
     Route: 061

REACTIONS (1)
  - Death [Fatal]
